FAERS Safety Report 10513062 (Version 1)
Quarter: 2014Q4

REPORT INFORMATION
  Report Type: Spontaneous
  Country: GB (occurrence: GB)
  Receive Date: 20141013
  Receipt Date: 20141013
  Transmission Date: 20150528
  Serious: Yes (Hospitalization)
  Sender: FDA-Public Use
  Company Number: GB-AUROBINDO-AUR-APL-2014-10651

PATIENT
  Sex: Female

DRUGS (3)
  1. XEPLION                            /05724802/ [Suspect]
     Active Substance: PALIPERIDONE PALMITATE
     Indication: SCHIZOPHRENIA
     Dosage: UNK
     Route: 030
  2. RISPERIDONE FILM-COATED TABLETS 4 MG [Suspect]
     Active Substance: RISPERIDONE
     Dosage: 2 MG, DAILY
  3. RISPERIDONE FILM-COATED TABLETS 4 MG [Suspect]
     Active Substance: RISPERIDONE
     Indication: SCHIZOPHRENIA
     Dosage: 4 MG, DAILY
     Route: 048

REACTIONS (2)
  - Drug ineffective [Unknown]
  - Malaise [Unknown]
